FAERS Safety Report 4941861-7 (Version None)
Quarter: 2006Q1

REPORT INFORMATION
  Report Type: 
  Country: None (occurrence: None)
  Receive Date: 20060308
  Receipt Date: 20060224
  Transmission Date: 20060701
  Serious: Yes (Life-Threatening)
  Sender: FDA-Public Use
  Company Number: RENA-11684

PATIENT
  Age: 46 Year
  Sex: Female
  Weight: 38.4 kg

DRUGS (18)
  1. RENAGEL [Suspect]
     Indication: HYPERPHOSPHATAEMIA
     Dosage: 0.5 G TID PO
     Route: 048
     Dates: start: 20050117, end: 20060128
  2. CYANOCOBALAMIN [Concomitant]
  3. ALINAMIN F [Concomitant]
  4. CEREKINON [Concomitant]
  5. HALCION [Concomitant]
  6. ROHYPNOL [Concomitant]
  7. LENDORMIN [Concomitant]
  8. DIOVAN [Concomitant]
  9. GASTER D [Concomitant]
  10. PURSENNID [Concomitant]
  11. ZYLORIC [Concomitant]
  12. SORBITOL [Concomitant]
  13. EPOGEN [Concomitant]
  14. OXAROL [Concomitant]
  15. HERBESSOR R [Concomitant]
  16. RISUMIC [Concomitant]
  17. CALCIUM GLUCONATE [Concomitant]
  18. MEOAMIYU (AMINO ACID) [Concomitant]

REACTIONS (3)
  - DIVERTICULAR PERFORATION [None]
  - FAECES HARD [None]
  - INCORRECT DOSE ADMINISTERED [None]
